FAERS Safety Report 7627812-5 (Version None)
Quarter: 2011Q3

REPORT INFORMATION
  Report Type: 
  Country: None (occurrence: None)
  Receive Date: 20110721
  Receipt Date: 20110714
  Transmission Date: 20111222
  Serious: Yes (Other)
  Sender: FDA-Public Use
  Company Number: US-B.I. PHARMACEUTICALS,INC./RIDGEFIELD-2011-BP-15335BP

PATIENT
  Age: 77 Year
  Sex: Male

DRUGS (6)
  1. LISINOPRIL [Concomitant]
  2. TIMOLOL [Concomitant]
  3. SIMVASTATIN [Concomitant]
  4. PRADAXA [Suspect]
     Indication: ANTICOAGULANT THERAPY
     Dosage: 300 MG
     Dates: start: 20110519, end: 20110602
  5. WARFARIN SODIUM [Concomitant]
  6. FINASTERIDE [Concomitant]

REACTIONS (3)
  - RASH PRURITIC [None]
  - URTICARIA [None]
  - DYSPHAGIA [None]
